FAERS Safety Report 8120185-3 (Version None)
Quarter: 2012Q1

REPORT INFORMATION
  Report Type: 
  Country: None (occurrence: None)
  Receive Date: 20120207
  Receipt Date: 20120130
  Transmission Date: 20120608
  Serious: Yes (Hospitalization)
  Sender: FDA-Public Use
  Company Number: US-BAYER-2010-008417

PATIENT
  Age: 26 Year
  Sex: Female
  Weight: 68.027 kg

DRUGS (4)
  1. YAZ [Suspect]
     Indication: MENSTRUATION IRREGULAR
  2. YAZ [Suspect]
     Indication: CONTRACEPTION
     Dosage: UNK
     Dates: start: 20080701, end: 20081218
  3. TOPAMAX [Concomitant]
     Indication: MIGRAINE
     Dosage: 25 MG, UNK
  4. YAZ [Suspect]
     Indication: PREMENSTRUAL SYNDROME

REACTIONS (7)
  - EMOTIONAL DISTRESS [None]
  - GENERAL PHYSICAL HEALTH DETERIORATION [None]
  - PNEUMONIA [None]
  - PLEURITIC PAIN [None]
  - PULMONARY EMBOLISM [None]
  - PAIN [None]
  - INJURY [None]
